FAERS Safety Report 10435938 (Version 1)
Quarter: 2014Q3

REPORT INFORMATION
  Report Type: Spontaneous
  Country: US (occurrence: None)
  Receive Date: 20140904
  Receipt Date: 20140904
  Transmission Date: 20150326
  Serious: Yes (Hospitalization)
  Sender: FDA-Public Use
  Company Number: 14AE037

PATIENT
  Age: 71 Year
  Sex: Male

DRUGS (18)
  1. FUROSMIDE [Concomitant]
  2. FERROUS SULFATE [Concomitant]
     Active Substance: FERROUS SULFATE\FERROUS SULFATE, DRIED
  3. LOSARTAN [Concomitant]
     Active Substance: LOSARTAN
  4. METOPROLOL TARTRATE. [Concomitant]
     Active Substance: METOPROLOL TARTRATE
  5. GARLIC. [Concomitant]
     Active Substance: GARLIC
  6. LISINOPRIL. [Concomitant]
     Active Substance: LISINOPRIL
  7. CINNAMON. [Concomitant]
     Active Substance: CINNAMON
  8. GLUCOSAMINE [Concomitant]
     Active Substance: GLUCOSAMINE
  9. EXTRA STRENGTH ACETAMINOPHEN [Suspect]
     Active Substance: ACETAMINOPHEN
     Indication: BACK PAIN
     Dosage: 2 Y MOUTH EVERY 4-6 HOURS
     Dates: start: 20140809
  10. SULFASALAZINE. [Concomitant]
     Active Substance: SULFASALAZINE
  11. MISOPROSTOL. [Concomitant]
     Active Substance: MISOPROSTOL
  12. KLORKON [Concomitant]
  13. FINASTERIDE. [Concomitant]
     Active Substance: FINASTERIDE
  14. VITAMIN E,B,C [Concomitant]
  15. CALCIUM [Concomitant]
     Active Substance: CALCIUM
  16. LOVASTATIN. [Concomitant]
     Active Substance: LOVASTATIN
  17. INDOMETHACIN. [Concomitant]
     Active Substance: INDOMETHACIN
  18. TERAZOSIN [Concomitant]
     Active Substance: TERAZOSIN\TERAZOSIN HYDROCHLORIDE

REACTIONS (3)
  - Spinal fracture [None]
  - Blood pressure increased [None]
  - Pain [None]

NARRATIVE: CASE EVENT DATE: 20140810
